FAERS Safety Report 9101784 (Version 1)
Quarter: 2013Q1

REPORT INFORMATION
  Report Type: Spontaneous
  Country: US (occurrence: US)
  Receive Date: 20130218
  Receipt Date: 20130218
  Transmission Date: 20140127
  Serious: No
  Sender: FDA-Public Use
  Company Number: US-BAYER-2013-019210

PATIENT
  Sex: Male

DRUGS (1)
  1. ALEVE CAPLET/TABLET,MIDOL EXTENDED RELIEF CAPLET [Suspect]
     Indication: MUSCULOSKELETAL PAIN
     Dosage: 2 DF, BID
     Route: 048
     Dates: start: 201301

REACTIONS (3)
  - Drug ineffective [None]
  - Overdose [None]
  - Incorrect drug administration duration [None]
